FAERS Safety Report 6954945-9 (Version None)
Quarter: 2010Q3

REPORT INFORMATION
  Report Type: 
  Country: None (occurrence: None)
  Receive Date: 20100830
  Receipt Date: 20100825
  Transmission Date: 20110219
  Serious: Yes (Other)
  Sender: FDA-Public Use
  Company Number: PHHY2010JP16588

PATIENT
  Sex: Female

DRUGS (9)
  1. RASILEZ [Suspect]
     Indication: HYPERTENSION
     Dosage: 150 MG, UNK
     Route: 048
     Dates: start: 20091116
  2. BLOPRESS [Concomitant]
     Indication: HYPERTENSION
     Dosage: 8 MG, UNK
     Route: 048
     Dates: start: 20090118
  3. LUPRAC [Concomitant]
     Indication: HYPERTENSION
     Dosage: 8 MG, UNK
     Route: 048
     Dates: start: 20090413
  4. ASPIRIN [Concomitant]
     Indication: CEREBRAL INFARCTION
     Dosage: 100 MG, UNK
     Route: 048
     Dates: start: 20090413
  5. CRESTOR [Concomitant]
     Indication: LIPIDS ABNORMAL
     Dosage: 2.5 MG, UNK
     Route: 048
     Dates: start: 20090413
  6. PRORENAL [Concomitant]
     Indication: LIPIDS ABNORMAL
     Dosage: 15 UG, UNK
     Route: 048
     Dates: start: 20090105
  7. JUVELA [Concomitant]
     Indication: LIPIDS ABNORMAL
     Dosage: 600 MG, UNK
     Route: 048
     Dates: start: 20090105
  8. METHYCOBAL [Concomitant]
     Indication: LIPIDS ABNORMAL
     Dosage: 1500 UG, UNK
     Route: 048
     Dates: start: 20090105
  9. SEIBULE [Concomitant]
     Indication: DIABETES MELLITUS
     Dosage: 150 MG, UNK
     Route: 048
     Dates: start: 20090105

REACTIONS (1)
  - BRAIN NATRIURETIC PEPTIDE INCREASED [None]
